FAERS Safety Report 9010983 (Version 3)
Quarter: 2013Q1

REPORT INFORMATION
  Report Type: Report from Study
  Country: DE (occurrence: DE)
  Receive Date: 20130109
  Receipt Date: 20130219
  Transmission Date: 20140127
  Serious: Yes (Hospitalization, Other)
  Sender: FDA-Public Use
  Company Number: DE-OTSUKA-EU-2011-10262

PATIENT
  Sex: Female
  Weight: 75 kg

DRUGS (111)
  1. SAMSCA [Suspect]
     Indication: INAPPROPRIATE ANTIDIURETIC HORMONE SECRETION
     Dosage: 7.5 MG MILLIGRAM(S), UNKNOWN
     Route: 048
     Dates: start: 20111021, end: 20111024
  2. SAMSCA [Suspect]
     Dosage: 15 MG MILLIGRAM(S), DAILY DOSE
     Route: 048
     Dates: start: 20120122, end: 20120208
  3. SAMSCA [Suspect]
     Dosage: 15 MG MILLIGRAM(S), QOD
     Route: 048
     Dates: start: 20120209, end: 20120218
  4. SAMSCA [Suspect]
     Dosage: 7.5 MG MILLIGRAM(S), QOD
     Route: 048
     Dates: start: 20120219, end: 201203
  5. PANTOZOL [Concomitant]
     Indication: PROPHYLAXIS AGAINST GASTROINTESTINAL ULCER
     Dosage: 80 MG MILLIGRAM(S), DAILY DOSE
     Route: 048
     Dates: start: 20111018, end: 20111101
  6. PANTOZOL [Concomitant]
     Indication: GASTROOESOPHAGEAL REFLUX DISEASE
     Dosage: 40 MG MILLIGRAM(S), DAILY DOSE
     Route: 048
     Dates: start: 20111103, end: 20111108
  7. PANTOZOL [Concomitant]
     Dosage: 80 MG MILLIGRAM(S), DAILY DOSE
     Route: 048
     Dates: start: 20111109, end: 20111123
  8. PANTOZOL [Concomitant]
     Dosage: 80 MG MILLIGRAM(S), DAILY DOSE
     Route: 048
     Dates: start: 20111127
  9. IMBUN [Concomitant]
     Indication: TUMOUR PAIN
     Dosage: 1600 MG MILLIGRAM(S), DAILY DOSE
     Route: 048
     Dates: start: 20111028, end: 20111028
  10. IMBUN [Concomitant]
     Dosage: 2400 MG MILLIGRAM(S), DAILY DOSE
     Route: 048
     Dates: start: 20111029, end: 20111121
  11. SULTANOL [Concomitant]
     Indication: DYSPNOEA
     Dosage: 4 DF DOSAGE FORM, DAILY DOSE
     Route: 050
     Dates: start: 20111027, end: 20111031
  12. SULTANOL [Concomitant]
     Dosage: 3 DF DOSAGE FORM, DAILY DOSE
     Route: 050
     Dates: start: 20111101, end: 20111108
  13. SULTANOL [Concomitant]
     Dosage: UNK UNKNOWN, Q6HR
     Route: 007
     Dates: start: 20120206, end: 20120221
  14. ATROVENT [Concomitant]
     Indication: DYSPNOEA
     Dosage: 4 DF DOSAGE FORM, DAILY DOSE
     Route: 050
     Dates: start: 20111027, end: 20111031
  15. ATROVENT [Concomitant]
     Dosage: 3 DF DOSAGE FORM, DAILY DOSE
     Route: 050
     Dates: start: 20111101, end: 20111108
  16. ATROVENT [Concomitant]
     Dosage: 4 UNKNOWN, Q6HR
     Route: 007
     Dates: start: 20120206, end: 20120221
  17. DORMICUM [Concomitant]
     Indication: ANAESTHETIC PREMEDICATION
     Dosage: 11.25 MG MILLIGRAM(S), DAILY DOSE
     Route: 048
     Dates: start: 20111101, end: 20111101
  18. KALINOR [Concomitant]
     Indication: HYPOKALAEMIA
     Dosage: 2 DF DOSAGE FORM, DAILY DOSE
     Route: 048
     Dates: start: 20111102, end: 20111103
  19. KALINOR [Concomitant]
     Dosage: 1 DF DOSAGE FORM, DAILY DOSE
     Route: 048
     Dates: start: 20111104, end: 20111108
  20. NACL [Concomitant]
     Indication: RESPIRATION ABNORMAL
     Dosage: 4 DF DOSAGE FORM, DAILY DOSE
     Route: 050
     Dates: start: 20111018, end: 20111024
  21. TARGIN [Concomitant]
     Indication: TUMOUR PAIN
     Dosage: 20 MG MILLIGRAM(S), DAILY DOSE
     Route: 048
     Dates: start: 20111018, end: 20111022
  22. TARGIN [Concomitant]
     Dosage: 30 MG MILLIGRAM(S), DAILY DOSE
     Route: 048
     Dates: start: 20111023, end: 20111023
  23. TARGIN [Concomitant]
     Dosage: 40 MG MILLIGRAM(S), DAILY DOSE
     Route: 048
     Dates: start: 20111024, end: 20111024
  24. BIFITERAL [Concomitant]
     Indication: CONSTIPATION
     Dosage: 1 DF DOSAGE FORM, DAILY DOSE
     Route: 048
     Dates: start: 20111019, end: 20111019
  25. BIFITERAL [Concomitant]
     Dosage: 3 DF DOSAGE FORM, DAILY DOSE
     Route: 048
     Dates: start: 20111020, end: 20111024
  26. BIFITERAL [Concomitant]
     Dosage: 20 ML MILLILITRE(S), DAILY DOSE
     Route: 048
     Dates: start: 20111025, end: 20111128
  27. ZOPICLONE [Concomitant]
     Indication: INSOMNIA
     Dosage: 7.5 MG MILLIGRAM(S), DAILY DOSE
     Route: 048
     Dates: start: 20111019, end: 20111024
  28. ZOPICLONE [Concomitant]
     Dosage: 7.5 MG MILLIGRAM(S), DAILY DOSE
     Route: 048
     Dates: start: 20111028, end: 20111029
  29. ZOPICLONE [Concomitant]
     Dosage: 7.5 MG MILLIGRAM(S), DAILY DOSE
     Route: 048
     Dates: start: 201201
  30. ZOPICLONE [Concomitant]
     Dosage: 7.5 MG MILLIGRAM(S), DAILY DOSE
     Route: 048
     Dates: start: 20111101, end: 20111101
  31. PARACETAMOL [Concomitant]
     Indication: TUMOUR PAIN
     Dosage: 1 G GRAM(S), DAILY DOSE
     Route: 048
     Dates: start: 20111018, end: 20111018
  32. PARACETAMOL [Concomitant]
     Dosage: 3 G GRAM(S), DAILY DOSE
     Route: 048
     Dates: start: 20111019, end: 20111024
  33. PARACETAMOL [Concomitant]
     Dosage: 4 UNKNOWN, DAILY DOSE
     Route: 048
     Dates: start: 20120214, end: 20120217
  34. L-THYROXIN [Concomitant]
     Indication: HYPOTHYROIDISM
     Dosage: 50 MG MILLIGRAM(S), DAILY DOSE
     Route: 048
     Dates: start: 20111019, end: 20111019
  35. L-THYROXIN [Concomitant]
     Dosage: 25 MG MILLIGRAM(S), DAILY DOSE
     Route: 048
     Dates: start: 20111020
  36. PANTOZOL [Concomitant]
     Indication: GASTROOESOPHAGEAL REFLUX DISEASE
     Dosage: 80 MG MILLIGRAM(S), DAILY DOSE
     Route: 048
     Dates: start: 20111018, end: 20111024
  37. PANTOZOL [Concomitant]
     Indication: PROPHYLAXIS AGAINST GASTROINTESTINAL ULCER
  38. BELOC ZOK [Concomitant]
     Indication: HYPERTENSION
     Dosage: 12.25 MG MILLIGRAM(S), DAILY DOSE
     Route: 048
     Dates: end: 20111024
  39. ASS [Concomitant]
     Indication: ARTERIOSCLEROSIS
     Dosage: 100 MG MILLIGRAM(S), DAILY DOSE
     Route: 048
     Dates: start: 20100223, end: 20111123
  40. ASS [Concomitant]
     Dosage: 100 MG MILLIGRAM(S), DAILY DOSE
     Route: 048
     Dates: start: 20111129, end: 201201
  41. ASS [Concomitant]
     Dosage: 100 MG MILLIGRAM(S), DAILY DOSE
     Route: 048
     Dates: start: 20120207
  42. FRAGMIN P [Concomitant]
     Indication: THROMBOSIS PROPHYLAXIS
     Dosage: 5000 IU, DAILY DOSE
     Route: 058
     Dates: start: 20111017, end: 20111106
  43. FRAGMIN P [Concomitant]
     Dosage: 1 DF DOSAGE FORM, DAILY DOSE
     Route: 058
     Dates: start: 20120117, end: 20120123
  44. FRAGMIN P [Concomitant]
     Dosage: 1 DF DOSAGE FORM, DAILY DOSE
     Route: 058
     Dates: start: 20120208, end: 20120221
  45. DULCOLAX [Concomitant]
     Indication: CONSTIPATION
     Dosage: 1 DF DOSAGE FORM, UNK
     Route: 048
     Dates: start: 20111019, end: 20111022
  46. MOVICOL [Concomitant]
     Indication: CONSTIPATION
     Dosage: 1 DF DOSAGE FORM, DAILY DOSE
     Route: 048
     Dates: start: 20111019, end: 20111020
  47. MOVICOL [Concomitant]
     Dosage: 3 DF DOSAGE FORM, DAILY DOSE
     Route: 048
     Dates: start: 20111021, end: 20111022
  48. MOVICOL [Concomitant]
     Dosage: 1 DF DOSAGE FORM, DAILY DOSE
     Route: 048
     Dates: start: 20120117, end: 20120123
  49. NOVALGIN [Concomitant]
     Indication: TUMOUR PAIN
     Dosage: 30 GTT DROP(S), DAILY DOSE
     Route: 048
     Dates: start: 20111017, end: 20111017
  50. NOVALGIN [Concomitant]
     Dosage: 30 MG MILLIGRAM(S), DAILY DOSE
     Route: 048
     Dates: start: 20111020, end: 20111020
  51. NOVALGIN [Concomitant]
     Dosage: 1000 MG MILLIGRAM(S), DAILY DOSE
     Route: 042
     Dates: start: 20111028, end: 20111028
  52. NOVALGIN [Concomitant]
     Dosage: 80 GTT DROP(S), DAILY DOSE
     Route: 048
     Dates: start: 20120206, end: 20120206
  53. NOVALGIN [Concomitant]
     Dosage: 160 GTT DROP(S), DAILY DOSE
     Route: 048
     Dates: start: 20120207, end: 20120210
  54. NOVALGIN [Concomitant]
     Dosage: 40 GTT DROP(S), DAILY DOSE
     Route: 048
     Dates: start: 20120211, end: 20120211
  55. DIPIDOLOR [Concomitant]
     Indication: TUMOUR PAIN
     Dosage: 0.5 DF DOSAGE FORM, DAILY DOSE
     Route: 065
     Dates: start: 20111021, end: 20111022
  56. DIPIDOLOR [Concomitant]
     Dosage: 1 DF DOSAGE FORM, DAILY DOSE
     Route: 048
     Dates: start: 20111029, end: 20111029
  57. SEVREDOL [Concomitant]
     Indication: TUMOUR PAIN
     Dosage: 10 MG MILLIGRAM(S), DAILY DOSE
     Route: 048
     Dates: start: 20111019, end: 20111019
  58. SEVREDOL [Concomitant]
     Dosage: 20 MG MILLIGRAM(S), DAILY DOSE
     Route: 048
     Dates: start: 20111020, end: 20111020
  59. SEVREDOL [Concomitant]
     Dosage: 10 MG MILLIGRAM(S), DAILY DOSE
     Route: 048
     Dates: start: 20111021, end: 20111022
  60. SEVREDOL [Concomitant]
     Dosage: 30 MG MILLIGRAM(S), DAILY DOSE
     Route: 048
     Dates: start: 20111023, end: 20111023
  61. SEVREDOL [Concomitant]
     Dosage: 10 MG MILLIGRAM(S), DAILY DOSE
     Route: 048
     Dates: start: 20111102, end: 20111102
  62. SEVREDOL [Concomitant]
     Dosage: `10 MG MILLIGRAM(S), DAILY DOSE
     Route: 048
     Dates: start: 20111103, end: 20111103
  63. SIMVASTATIN [Concomitant]
     Indication: ARTERIOSCLEROSIS
     Dosage: 20 MG MILLIGRAM(S), DAILY DOSE
     Route: 048
     Dates: start: 20100223, end: 20111017
  64. PANTOZOL [Concomitant]
     Indication: PROPHYLAXIS AGAINST GASTROINTESTINAL ULCER
     Dosage: 20 MG MILLIGRAM(S), DAILY DOSE
     Route: 048
     Dates: start: 20100223, end: 20111017
  65. THYRONAJOD [Concomitant]
     Indication: HYPOTHYROIDISM
     Dosage: 25 MCG, DAILY DOSE
     Route: 048
     Dates: start: 20100223, end: 20111017
  66. SALINE [Concomitant]
     Dosage: 154 MMOL MILLIMOLE(S), UNK
     Dates: start: 20111017, end: 20111017
  67. SALINE [Concomitant]
     Dosage: 231 MMOL MILLIMOLE(S), DAILY DOSE
     Dates: start: 20111027, end: 20111027
  68. SALINE [Concomitant]
     Dosage: 385 MMOL MILLIMOLE(S), DAILY DOSE
     Dates: start: 20111028, end: 20111029
  69. SALINE [Concomitant]
     Dosage: 231 MMOL MILLIMOLE(S), DAILY DOSE
     Dates: start: 20111030, end: 20111030
  70. SALINE [Concomitant]
     Dosage: 154 MMOL MILLIMOLE(S), DAILY DOSE
     Dates: start: 20120117, end: 20120119
  71. SALINE [Concomitant]
     Dosage: 308 MMOL MILLIMOLE(S), DAILY DOSE
     Dates: start: 20120122, end: 20120122
  72. SALINE [Concomitant]
     Dosage: 154 MMOL MILLIMOLE(S), DAILY DOSE
     Dates: start: 20120122, end: 20120122
  73. TAVOR [Concomitant]
     Indication: TUMOUR PAIN
     Dosage: 0.5 MG MILLIGRAM(S), DAILY DOSE
     Route: 060
     Dates: start: 20111029, end: 20111029
  74. TAVOR [Concomitant]
     Dosage: 0.5 MG MILLIGRAM(S), DAILY DOSE
     Route: 060
     Dates: start: 20111102, end: 20111102
  75. TAVOR [Concomitant]
     Dosage: 1 MG MILLIGRAM(S), DAILY DOSE
     Route: 048
     Dates: start: 20120206, end: 20120209
  76. TAVOR [Concomitant]
     Dosage: 1.5 MG MILLIGRAM(S), DAILY DOSE
     Route: 048
     Dates: start: 20120210
  77. SAROTEN [Concomitant]
     Indication: TUMOUR PAIN
     Dosage: 25 MG MILLIGRAM(S), DAILY DOSE
     Route: 048
     Dates: start: 20120206, end: 20120217
  78. SAROTEN [Concomitant]
     Dosage: 50 MG MILLIGRAM(S), DAILY DOSE
     Route: 048
     Dates: start: 20120218
  79. CISPLATIN [Concomitant]
     Indication: SMALL CELL LUNG CANCER
     Dosage: 144.8 G GRAM(S), DAILY DOSE
     Route: 042
     Dates: start: 20111028, end: 20111028
  80. CISPLATIN [Concomitant]
     Dosage: UNK
     Dates: start: 201111, end: 201111
  81. CISPLATIN [Concomitant]
     Dosage: UNK
     Dates: start: 201201, end: 201201
  82. ETOPOSIDE [Concomitant]
     Indication: SMALL CELL LUNG CANCER
     Dosage: 181 MG MILLIGRAM(S), DAILY DOSE
     Route: 042
     Dates: start: 20111028, end: 20111030
  83. ETOPOSIDE [Concomitant]
     Dosage: UNK
     Dates: start: 201111, end: 201111
  84. ETOPOSIDE [Concomitant]
     Dosage: UNK
     Dates: start: 201201, end: 201201
  85. FORTECORTIN [Concomitant]
     Indication: SMALL CELL LUNG CANCER
     Dosage: 12 MG MILLIGRAM(S), DAILY DOSE
     Route: 042
     Dates: start: 20111028, end: 20111028
  86. FORTECORTIN [Concomitant]
     Dosage: 8 MG MILLIGRAM(S), DAILY DOSE
     Route: 042
     Dates: start: 20111029, end: 20111030
  87. EMEND [Concomitant]
     Indication: PROPHYLAXIS OF NAUSEA AND VOMITING
     Dosage: 125 MG MILLIGRAM(S), DAILY DOSE
     Route: 048
     Dates: start: 20111028, end: 20111028
  88. EMEND [Concomitant]
     Dosage: 80 MG MILLIGRAM(S), DAILY DOSE
     Route: 048
     Dates: start: 20111029, end: 20111030
  89. AMPHO MORONAL [Concomitant]
     Indication: PROPHYLAXIS
     Dosage: 4 DF DOSAGE FORM, DAILY DOSE
     Route: 048
     Dates: start: 20111029, end: 20111108
  90. MCP [Concomitant]
     Indication: PROPHYLAXIS OF NAUSEA AND VOMITING
     Dosage: 20 GTT DROP(S), DAILY DOSE
     Route: 048
     Dates: start: 20111028, end: 20111028
  91. MCP [Concomitant]
     Dosage: 60 GTT DROP(S), DAILY DOSE
     Route: 048
     Dates: start: 20111029, end: 20111029
  92. MCP [Concomitant]
     Dosage: 20 GTT DROP(S), DAILY DOSE
     Route: 048
     Dates: start: 20120208, end: 20120208
  93. MCP [Concomitant]
     Dosage: 60 GTT DROP(S), DAILY DOSE
     Route: 048
     Dates: start: 20120209, end: 20120219
  94. AVALOX [Concomitant]
     Indication: PROPHYLAXIS
     Dosage: 400 MG MILLIGRAM(S), DAILY DOSE
     Route: 048
     Dates: start: 20111027, end: 20111108
  95. DUROGESIC [Concomitant]
     Indication: TUMOUR PAIN
     Dosage: 50 ?G MICROGRAM(S), Q1HR
     Route: 062
     Dates: start: 20111101, end: 20120212
  96. DUROGESIC [Concomitant]
     Dosage: 100 ?G MICROGRAM(S), Q1HR
     Route: 062
     Dates: start: 20120213
  97. LYRICA [Concomitant]
     Indication: TUMOUR PAIN
     Dosage: 75 MG MILLIGRAM(S), DAILY DOSE
     Route: 048
     Dates: start: 20111029, end: 20111029
  98. LYRICA [Concomitant]
     Dosage: 150 MG MILLIGRAM(S), DAILY DOSE
     Route: 048
     Dates: start: 20111030, end: 201201
  99. OXYGESIC [Concomitant]
     Indication: TUMOUR PAIN
     Dosage: 40 MG MILLIGRAM(S), DAILY DOSE
     Route: 048
     Dates: start: 20111027, end: 20111030
  100. OXYGESIC [Concomitant]
     Dosage: 40 MG MILLIGRAM(S), DAILY DOSE
     Route: 048
     Dates: start: 20111031, end: 20111031
  101. NITRAZEPAM [Concomitant]
     Indication: INSOMNIA
     Dosage: 10 MG MILLIGRAM(S), DAILY DOSE
     Route: 048
     Dates: start: 20111031, end: 20111031
  102. TAVOR [Concomitant]
     Indication: SLEEP DISORDER
     Dosage: 1 MG MILLIGRAM(S), DAILY DOSE
     Route: 048
     Dates: start: 20111030, end: 20111030
  103. TAVOR [Concomitant]
     Dosage: 1 MG MILLIGRAM(S), DAILY DOSE
     Route: 048
     Dates: start: 20120123, end: 20120123
  104. NITROGLYCERIN [Concomitant]
     Indication: HYPERTENSION
     Dosage: 2 DF DOSAGE FORM, DAILY DOSE
     Route: 002
     Dates: start: 20111029, end: 20111029
  105. MG [Concomitant]
     Indication: HYPOMAGNESAEMIA
     Dosage: 3 DF DOSAGE FORM, DAILY DOSE
     Route: 048
     Dates: start: 20111103, end: 20111103
  106. MG [Concomitant]
     Dosage: 1 DF DOSAGE FORM, DAILY DOSE
     Route: 048
     Dates: start: 20111104, end: 20111104
  107. MG [Concomitant]
     Dosage: 2 DF DOSAGE FORM, DAILY DOSE
     Route: 048
     Dates: start: 20111105, end: 20111115
  108. AMINOMIX [Concomitant]
     Indication: NUTRITIONAL SUPPLEMENTATION
     Dosage: 500 ML MILLILITRE(S), DAILY DOSE
     Route: 042
     Dates: start: 20120206, end: 20120221
  109. AREDIA [Concomitant]
     Indication: METASTASES TO BONE
     Dosage: 60 MG MILLIGRAM(S), DAILY DOSE
     Route: 042
     Dates: start: 20120212, end: 20120212
  110. KATADOLON S [Concomitant]
     Indication: TUMOUR PAIN
     Dosage: 1 DF DOSAGE FORM, DAILY DOSE
     Route: 048
     Dates: start: 20120210, end: 20120220
  111. CLINOLIC [Concomitant]
     Indication: NUTRITIONAL SUPPLEMENTATION
     Dosage: 1 DF DOSAGE FORM, DAILY DOSE
     Route: 042
     Dates: start: 20120206, end: 20120221

REACTIONS (17)
  - Confusional state [Recovered/Resolved]
  - Oesophagitis [Recovered/Resolved]
  - Tumour pain [Recovering/Resolving]
  - Fear [Recovering/Resolving]
  - Neutropenic infection [Recovered/Resolved]
  - Neutropenia [Recovered/Resolved]
  - Vomiting [Recovered/Resolved]
  - Oropharyngeal pain [Recovered/Resolved]
  - Hypertension [Recovered/Resolved]
  - Tachycardia [Recovered/Resolved]
  - Hypokalaemia [Recovered/Resolved]
  - Hypokalaemia [Recovered/Resolved]
  - Nausea [Recovered/Resolved]
  - Diarrhoea [Recovered/Resolved]
  - Nausea [Recovered/Resolved]
  - Wrong technique in drug usage process [Unknown]
  - Incorrect drug administration rate [Unknown]
